FAERS Safety Report 8235099 (Version 3)
Quarter: 2012Q4

REPORT INFORMATION
  Report Type: 
  Country: US (occurrence: US)
  Receive Date: 20111108
  Receipt Date: 20120904
  Transmission Date: 20130627
  Serious: No
  Sender: FDA-Public Use
  Company Number: US-PFIZER INC-2011262934

PATIENT
  Age: 52 Year
  Sex: Male
  Weight: 90.7 kg

DRUGS (7)
  1. ZALEPLON [Suspect]
     Indication: INSOMNIA
     Dosage: 10 mg, as needed
     Route: 048
     Dates: start: 20110816
  2. LEVOTHYROXINE [Concomitant]
     Dosage: 150 ug, alternate day (every other day)
  3. LEVOTHYROXINE [Concomitant]
     Dosage: 175 ug, alternate day (every other day)
  4. ADDERALL [Concomitant]
     Dosage: 5 mg, UNK
  5. CALCIUM [Concomitant]
     Dosage: UNK
  6. FISH OIL [Concomitant]
     Dosage: UNK
  7. MULTIVITAMINS [Concomitant]
     Dosage: UNK

REACTIONS (2)
  - Drug ineffective [Unknown]
  - Insomnia [Unknown]
